FAERS Safety Report 9950006 (Version 1)
Quarter: 2014Q1

REPORT INFORMATION
  Report Type: Report from Study
  Country: US (occurrence: US)
  Receive Date: 20140304
  Receipt Date: 20140304
  Transmission Date: 20141002
  Serious: No
  Sender: FDA-Public Use
  Company Number: US-ABBVIE-13P-163-1069475-00

PATIENT
  Age: 63 Year
  Sex: Female
  Weight: 52.21 kg

DRUGS (3)
  1. HUMIRA [Suspect]
     Indication: CROHN^S DISEASE
     Dates: start: 201111, end: 201212
  2. HUMIRA [Suspect]
     Dates: start: 201212, end: 201212
  3. VITAMIN D WITH CALCIUM [Concomitant]
     Indication: PRODUCT USED FOR UNKNOWN INDICATION
     Dates: start: 201212, end: 201301

REACTIONS (5)
  - Diarrhoea [Recovered/Resolved]
  - Eye infection [Recovered/Resolved]
  - Rash [Recovered/Resolved]
  - Staphylococcal skin infection [Recovered/Resolved]
  - Streptococcal infection [Recovered/Resolved]
